FAERS Safety Report 5366056-7 (Version None)
Quarter: 2007Q2

REPORT INFORMATION
  Report Type: 
  Country: None (occurrence: None)
  Receive Date: 20070605
  Receipt Date: 20070220
  Transmission Date: 20071010
  Serious: Yes (Other)
  Sender: FDA-Public Use
  Company Number: SPV1-2007-00317

PATIENT
  Age: 11 Year
  Sex: Male
  Weight: 36.3 kg

DRUGS (1)
  1. DAYTRANA [Suspect]
     Indication: ATTENTION DEFICIT/HYPERACTIVITY DISORDER
     Dosage: 15MG, TRANSDERMAL
     Route: 062
     Dates: start: 20061001

REACTIONS (2)
  - HEADACHE [None]
  - URTICARIA [None]
